FAERS Safety Report 24132639 (Version 1)
Quarter: 2024Q3

REPORT INFORMATION
  Report Type: Spontaneous
  Country: US (occurrence: None)
  Receive Date: 20240723
  Receipt Date: 20240723
  Transmission Date: 20241017
  Serious: No
  Sender: Public
  Company Number: None

PATIENT
  Sex: Female
  Weight: 81 kg

DRUGS (1)
  1. SEMAGLUTIDE [Suspect]
     Active Substance: SEMAGLUTIDE
     Indication: Obesity
     Dosage: OTHER QUANTITY : 1 INJECTION(S)?OTHER FREQUENCY : WEEKLY??
     Route: 058
     Dates: start: 20240715, end: 20240723

REACTIONS (3)
  - Product quality issue [None]
  - Product dispensing error [None]
  - Wrong product administered [None]
